FAERS Safety Report 4788740-6 (Version None)
Quarter: 2005Q4

REPORT INFORMATION
  Report Type: 
  Country: None (occurrence: None)
  Receive Date: 20051003
  Receipt Date: 20041029
  Transmission Date: 20060501
  Serious: Yes (Other)
  Sender: FDA-Public Use
  Company Number: US-JNJFOC-20041101637

PATIENT

DRUGS (1)
  1. CONCERTA [Suspect]
     Dosage: ORAL
     Route: 048

REACTIONS (1)
  - CONVULSION [None]
